FAERS Safety Report 8816349 (Version 1)
Quarter: 2012Q4

REPORT INFORMATION
  Report Type: Spontaneous
  Country: US (occurrence: None)
  Receive Date: 20120928
  Receipt Date: 20120928
  Transmission Date: 20130627
  Serious: No
  Sender: FDA-Public Use
  Company Number: None

PATIENT
  Sex: Male
  Weight: 99.34 kg

DRUGS (2)
  1. CLOPIDOGREL [Suspect]
     Indication: CORONARY STENT PLACEMENT
     Dosage: 75 mg qd po
     Route: 048
     Dates: start: 201207
  2. CLOPIDOGREL [Suspect]
     Indication: MYOCARDIAL INFARCTION
     Dosage: 75 mg qd po
     Route: 048
     Dates: start: 201207

REACTIONS (1)
  - Pruritus generalised [None]
